FAERS Safety Report 5069781-0 (Version None)
Quarter: 2006Q3

REPORT INFORMATION
  Report Type: 
  Country: None (occurrence: None)
  Receive Date: 20060803
  Receipt Date: 20060713
  Transmission Date: 20061208
  Serious: Yes (Other)
  Sender: FDA-Public Use
  Company Number: AU-GLAXOSMITHKLINE-B0430940A

PATIENT
  Age: 86 Year
  Sex: Male

DRUGS (2)
  1. POLIDENT ADHESIVE FRESHMINT [Suspect]
     Indication: DENTURE WEARER
     Dates: start: 20060712, end: 20060712
  2. ASTHMA MEDICATION [Concomitant]

REACTIONS (1)
  - ASTHMA [None]
